FAERS Safety Report 5767105-4 (Version None)
Quarter: 2008Q2

REPORT INFORMATION
  Report Type: 
  Country: None (occurrence: None)
  Receive Date: 20080612
  Receipt Date: 20080603
  Transmission Date: 20081010
  Serious: Yes (Other)
  Sender: FDA-Public Use
  Company Number: US-JNJFOC-20080601578

PATIENT
  Sex: Male

DRUGS (4)
  1. ULTRAM [Suspect]
  2. ULTRAM [Suspect]
     Indication: BACK PAIN
  3. NEURONTIN [Concomitant]
     Indication: PAIN
  4. CYCLOBENZAPRINE HCL [Concomitant]
     Indication: BACK PAIN

REACTIONS (2)
  - DRUG DEPENDENCE [None]
  - HEPATITIS B [None]
